FAERS Safety Report 5266401-7 (Version None)
Quarter: 2007Q1

REPORT INFORMATION
  Report Type: 
  Country: None (occurrence: None)
  Receive Date: 20070315
  Receipt Date: 20070201
  Transmission Date: 20070707
  Serious: No
  Sender: FDA-Public Use
  Company Number: US-GLAXOSMITHKLINE-A0634923A

PATIENT
  Sex: Female

DRUGS (1)
  1. FLOVENT [Suspect]
     Indication: TOTAL LUNG CAPACITY DECREASED
     Dosage: 1PUFF TWICE PER DAY
     Route: 055
     Dates: start: 20061213, end: 20070104

REACTIONS (11)
  - CHEILITIS [None]
  - ERYTHEMA [None]
  - GINGIVAL PAIN [None]
  - GINGIVAL RECESSION [None]
  - GINGIVAL SWELLING [None]
  - GINGIVITIS [None]
  - HYPERSENSITIVITY [None]
  - LIP PAIN [None]
  - LIP SWELLING [None]
  - NASAL OEDEMA [None]
  - RHINALGIA [None]
